FAERS Safety Report 4703746-0 (Version None)
Quarter: 2005Q2

REPORT INFORMATION
  Report Type: 
  Country: None (occurrence: None)
  Receive Date: 20050630
  Receipt Date: 20050420
  Transmission Date: 20051028
  Serious: Yes (Death, Other)
  Sender: FDA-Public Use
  Company Number: SEWYE608522APR05

PATIENT
  Sex: Female

DRUGS (5)
  1. ENBREL [Suspect]
     Indication: RHEUMATOID ARTHRITIS
     Dosage: 50 MG PER WEEK
     Route: 058
     Dates: start: 19990427, end: 19991201
  2. PREDNISOLONE [Concomitant]
  3. IBUPROFEN [Concomitant]
  4. ASPIRIN [Concomitant]
  5. FOLACIN [Concomitant]

REACTIONS (7)
  - ADVERSE DRUG REACTION [None]
  - CARDIAC FAILURE [None]
  - DRUG INEFFECTIVE [None]
  - NON-HODGKIN'S LYMPHOMA [None]
  - PERIANAL ABSCESS [None]
  - PYREXIA [None]
  - RADIATION INJURY [None]
